FAERS Safety Report 7348979-2 (Version None)
Quarter: 2011Q1

REPORT INFORMATION
  Report Type: 
  Country: None (occurrence: None)
  Receive Date: 20110314
  Receipt Date: 20110214
  Transmission Date: 20110831
  Serious: No
  Sender: FDA-Public Use
  Company Number: US-B.I. PHARMACEUTICALS,INC./RIDGEFIELD-2011-BP-05453BP

PATIENT
  Sex: Male

DRUGS (11)
  1. PRADAXA [Suspect]
     Indication: ATRIAL FIBRILLATION
     Dosage: 300 MG
     Route: 048
     Dates: start: 20110209
  2. CRESTOR [Concomitant]
     Indication: BLOOD CHOLESTEROL INCREASED
  3. NITROGLYCERIN [Concomitant]
     Indication: CARDIAC DISORDER
  4. COREG [Concomitant]
     Indication: CARDIAC DISORDER
  5. INSPRA [Concomitant]
     Indication: CARDIAC DISORDER
  6. JANUVIA [Concomitant]
     Indication: DIABETES MELLITUS
  7. RANEXA [Concomitant]
     Indication: CARDIAC DISORDER
  8. METFORMIN [Concomitant]
     Indication: DIABETES MELLITUS
  9. PLAVIX [Concomitant]
     Indication: STENT PLACEMENT
  10. ASPIRIN [Concomitant]
     Indication: PROPHYLAXIS
  11. DIOVART [Concomitant]
     Indication: HYPERTENSION

REACTIONS (1)
  - DYSPNOEA [None]
